FAERS Safety Report 16805438 (Version 1)
Quarter: 2019Q3

REPORT INFORMATION
  Report Type: Spontaneous
  Country: US (occurrence: US)
  Receive Date: 20190724
  Receipt Date: 20190724
  Transmission Date: 20191005
  Serious: Yes (Hospitalization)
  Sender: FDA-Public Use
  Company Number: None

PATIENT
  Age: 16 Year
  Sex: Male

DRUGS (9)
  1. IBUPROFEN. [Concomitant]
     Active Substance: IBUPROFEN
  2. SILENDAVIL [Concomitant]
  3. ALBUTEROL NEB SOLN [Concomitant]
  4. POTASSIM CHLORIDE [Concomitant]
  5. OPSUMIT [Suspect]
     Active Substance: MACITENTAN
     Indication: PULMONARY ARTERIAL HYPERTENSION
     Route: 048
     Dates: start: 201712
  6. SPIRONOLACTONE-HYDROCHLOROTHIAZIDE [Concomitant]
  7. UPTRAVI [Concomitant]
     Active Substance: SELEXIPAG
  8. FURSODEMIDE [Concomitant]
  9. ASPIRIN. [Concomitant]
     Active Substance: ASPIRIN

REACTIONS (4)
  - Nuclear magnetic resonance imaging [None]
  - Drain placement [None]
  - Biopsy liver [None]
  - Vascular operation [None]

NARRATIVE: CASE EVENT DATE: 20190626
